FAERS Safety Report 7930546-0 (Version None)
Quarter: 2011Q4

REPORT INFORMATION
  Report Type: 
  Country: None (occurrence: None)
  Receive Date: 20111121
  Receipt Date: 20111114
  Transmission Date: 20120403
  Serious: Yes (Death, Other)
  Sender: FDA-Public Use
  Company Number: DE-ROCHE-665822

PATIENT

DRUGS (1)
  1. MYCOPHENOLATE MOFETIL (CELLCEPT) [Suspect]
     Indication: PROPHYLAXIS AGAINST TRANSPLANT REJECTION

REACTIONS (13)
  - GASTRIC CANCER [None]
  - PANCREATIC CARCINOMA [None]
  - SEPSIS [None]
  - NEOPLASM [None]
  - LEUKAEMIA [None]
  - LIVER TRANSPLANT REJECTION [None]
  - HYPERTENSION [None]
  - BILIARY CIRRHOSIS PRIMARY [None]
  - BREAST CANCER [None]
  - EPSTEIN-BARR VIRUS ASSOCIATED LYMPHOPROLIFERATIVE DISORDER [None]
  - PROSTATE CANCER [None]
  - CYTOMEGALOVIRUS INFECTION [None]
  - DIABETES MELLITUS [None]
